FAERS Safety Report 5919759-7 (Version None)
Quarter: 2008Q4

REPORT INFORMATION
  Report Type: 
  Country: None (occurrence: None)
  Receive Date: 20081010
  Receipt Date: 20081003
  Transmission Date: 20090506
  Serious: Yes (Other)
  Sender: FDA-Public Use
  Company Number: STI-2008-02780

PATIENT
  Age: 40 Year
  Sex: Female

DRUGS (2)
  1. CLINDOXYL [Suspect]
     Indication: ACNE
     Dosage: (AT NIGHT),  ALL OVER FACE; THREE CONSECUTIVE DAYS
     Dates: start: 20080815, end: 20080801
  2. ORAL CONTRACEPTION (ORAL CONTRACEPTIVE NOS) [Concomitant]

REACTIONS (4)
  - DYSPNOEA [None]
  - NASAL CONGESTION [None]
  - RHINITIS [None]
  - SNEEZING [None]
